FAERS Safety Report 12880885 (Version 2)
Quarter: 2016Q4

REPORT INFORMATION
  Report Type: Report from Study
  Country: US (occurrence: US)
  Receive Date: 20161025
  Receipt Date: 20161110
  Transmission Date: 20170207
  Serious: Yes (Hospitalization, Other)
  Sender: FDA-Public Use
  Company Number: US-BAYER-2016-186424

PATIENT
  Age: 79 Year
  Sex: Male

DRUGS (21)
  1. XOFIGO [Suspect]
     Active Substance: RADIUM RA-223 DICHLORIDE
     Indication: PROSTATE CANCER STAGE IV
     Dosage: 165.00 (ONCE EVERY 28 DAYS)
     Route: 042
     Dates: start: 20160826, end: 20160826
  2. JANUVIA [Concomitant]
     Active Substance: SITAGLIPTIN PHOSPHATE
  3. VITAMIN B12 [COBAMAMIDE] [Concomitant]
  4. XOFIGO [Suspect]
     Active Substance: RADIUM RA-223 DICHLORIDE
     Indication: PROSTATE CANCER STAGE IV
     Dosage: UNK
     Dates: start: 20160603
  5. DIOVAN [VALSARTAN] [Concomitant]
  6. MAGNESIUM [MAGNESIUM] [Concomitant]
  7. XOFIGO [Suspect]
     Active Substance: RADIUM RA-223 DICHLORIDE
     Indication: PROSTATE CANCER STAGE IV
     Dosage: UNK
     Dates: start: 20160729
  8. LASIX [Concomitant]
     Active Substance: FUROSEMIDE
  9. VESICARE [SOLIFENACIN] [Concomitant]
  10. XTANDI [Concomitant]
     Active Substance: ENZALUTAMIDE
  11. TOPROL XL [Concomitant]
     Active Substance: METOPROLOL SUCCINATE
  12. METFORMIN [Concomitant]
     Active Substance: METFORMIN HYDROCHLORIDE
  13. AMARYL [Concomitant]
     Active Substance: GLIMEPIRIDE
  14. XGEVA [Concomitant]
     Active Substance: DENOSUMAB
  15. CENTRUM SILVER [Concomitant]
     Active Substance: MINERALS\VITAMINS
  16. VITAMIN D3 [Concomitant]
     Active Substance: CHOLECALCIFEROL
  17. PREDNISONE. [Concomitant]
     Active Substance: PREDNISONE
  18. ASPIRIN [ACETYLSALICYLIC ACID] [Concomitant]
     Dosage: 81 MG, UNK
  19. XOFIGO [Suspect]
     Active Substance: RADIUM RA-223 DICHLORIDE
     Indication: METASTASES TO BONE
     Dosage: UNK
     Dates: start: 20160701
  20. PRAVASTATIN. [Concomitant]
     Active Substance: PRAVASTATIN
  21. DEGARELIX [Concomitant]
     Active Substance: DEGARELIX

REACTIONS (10)
  - Cancer pain [Recovering/Resolving]
  - Herpes zoster [None]
  - Acute kidney injury [None]
  - Anaemia [None]
  - Hypotension [Recovering/Resolving]
  - Hypovolaemia [Recovering/Resolving]
  - Fatigue [None]
  - Dyspnoea [None]
  - Blood count abnormal [None]
  - Gait disturbance [None]

NARRATIVE: CASE EVENT DATE: 20161014
